FAERS Safety Report 6013312-5 (Version None)
Quarter: 2008Q4

REPORT INFORMATION
  Report Type: 
  Country: None (occurrence: None)
  Receive Date: 20081219
  Receipt Date: 20081209
  Transmission Date: 20090506
  Serious: Yes (Hospitalization, Disabling)
  Sender: FDA-Public Use
  Company Number: ES-AMGEN-US323219

PATIENT
  Age: 55 Year
  Sex: Male

DRUGS (4)
  1. ENBREL [Suspect]
     Indication: RHEUMATOID ARTHRITIS
     Route: 058
     Dates: start: 20030812, end: 20031105
  2. ISONIAZID [Suspect]
     Indication: PROPHYLAXIS
     Route: 048
     Dates: start: 20030807, end: 20031105
  3. PIROXICAM [Concomitant]
     Dosage: DOSE REGIMEN UNKNOWN
     Route: 048
  4. OMEPRAZOLE [Concomitant]
     Dosage: DOSE REGIMEN UNKNOWN
     Route: 048

REACTIONS (4)
  - DEMYELINATION [None]
  - NERVOUS SYSTEM DISORDER [None]
  - OPTIC NEURITIS [None]
  - VASCULITIS [None]
